FAERS Safety Report 24329583 (Version 1)
Quarter: 2024Q3

REPORT INFORMATION
  Report Type: Report from Study
  Country: BR (occurrence: BR)
  Receive Date: 20240917
  Receipt Date: 20240917
  Transmission Date: 20241016
  Serious: Yes (Other)
  Sender: NOVARTIS
  Company Number: BR-002147023-NVSC2024BR125450

PATIENT
  Age: 40 Year
  Sex: Female

DRUGS (2)
  1. KISQALI [Suspect]
     Active Substance: RIBOCICLIB
     Indication: Product used for unknown indication
     Dosage: UNK
     Route: 065
  2. LETROZOLE [Suspect]
     Active Substance: LETROZOLE
     Indication: Product used for unknown indication
     Dosage: UNK
     Route: 065

REACTIONS (13)
  - Ascites [Unknown]
  - Asphyxia [Unknown]
  - Viral infection [Recovered/Resolved]
  - Retching [Recovered/Resolved]
  - Diarrhoea [Recovered/Resolved]
  - Abdominal pain [Recovered/Resolved]
  - Vomiting [Recovered/Resolved]
  - Illness [Unknown]
  - Decreased appetite [Unknown]
  - Vomiting [Recovered/Resolved]
  - Abdominal discomfort [Recovering/Resolving]
  - Tremor [Unknown]
  - Anxiety [Unknown]

NARRATIVE: CASE EVENT DATE: 20240905
